FAERS Safety Report 9340665 (Version 1)
Quarter: 2013Q2

REPORT INFORMATION
  Report Type: Spontaneous
  Country: US (occurrence: US)
  Receive Date: 20130610
  Receipt Date: 20130610
  Transmission Date: 20140414
  Serious: Yes (Other)
  Sender: FDA-Public Use
  Company Number: US-GLAXOSMITHKLINE-A1026034A

PATIENT
  Age: 38 Year
  Sex: Female

DRUGS (9)
  1. LAMICTAL [Suspect]
     Indication: AFFECTIVE DISORDER
     Dates: start: 201210
  2. REBIF [Suspect]
     Indication: MULTIPLE SCLEROSIS
     Dosage: 44MCG THREE TIMES PER WEEK
     Route: 058
     Dates: start: 20120905
  3. LITHIUM [Concomitant]
  4. SEROQUEL [Concomitant]
  5. GABAPENTIN [Concomitant]
  6. DIAZEPAM [Concomitant]
  7. CITALOPRAM [Concomitant]
  8. GEODON [Concomitant]
  9. TEMAZEPAM [Concomitant]

REACTIONS (10)
  - Convulsion [Not Recovered/Not Resolved]
  - Rash generalised [Recovered/Resolved]
  - Hypersensitivity [Recovered/Resolved]
  - Central nervous system lesion [Unknown]
  - Dyspnoea [Unknown]
  - Retching [Unknown]
  - Gastrooesophageal reflux disease [Unknown]
  - Syncope [Unknown]
  - Balance disorder [Unknown]
  - Fatigue [Unknown]
